FAERS Safety Report 6594917-X (Version None)
Quarter: 2010Q1

REPORT INFORMATION
  Report Type: 
  Country: None (occurrence: None)
  Receive Date: 20100222
  Receipt Date: 20100212
  Transmission Date: 20100710
  Serious: Yes (Other)
  Sender: FDA-Public Use
  Company Number: US-GENENTECH-298109

PATIENT
  Age: 48 Year
  Sex: Male

DRUGS (2)
  1. RITUXAN [Suspect]
     Indication: NON-HODGKIN'S LYMPHOMA
     Dosage: 375 MG/M2, 1/WEEK X 4
  2. RITUXAN [Suspect]
     Indication: GRAFT VERSUS HOST DISEASE

REACTIONS (2)
  - GRAFT VERSUS HOST DISEASE [None]
  - NON-HODGKIN'S LYMPHOMA RECURRENT [None]
